FAERS Safety Report 7348009-2 (Version None)
Quarter: 2011Q1

REPORT INFORMATION
  Report Type: 
  Country: None (occurrence: None)
  Receive Date: 20110311
  Receipt Date: 20110210
  Transmission Date: 20110831
  Serious: Yes (Hospitalization, Other)
  Sender: FDA-Public Use
  Company Number: US-ASTRAZENECA-2009SE29784

PATIENT
  Age: 65 Year
  Sex: Female
  Weight: 59.9 kg

DRUGS (31)
  1. TOPROL-XL [Suspect]
     Route: 048
  2. PREMARIN [Concomitant]
     Indication: HORMONE REPLACEMENT THERAPY
  3. AZMACORT [Concomitant]
     Indication: ASTHMA
  4. CRESTOR [Suspect]
     Route: 048
     Dates: start: 20091001
  5. TOPROL-XL [Suspect]
     Indication: CARDIOVASCULAR DISORDER
     Route: 048
     Dates: start: 20080901
  6. TOPROL-XL [Suspect]
     Route: 048
  7. TOPROL-XL [Suspect]
     Route: 048
  8. PREMARIN [Concomitant]
     Dosage: 0.65 DAILY
  9. VALIUM [Concomitant]
     Indication: HYPOGLYCAEMIA
  10. VALIUM [Concomitant]
  11. LISINOPRIL [Concomitant]
     Indication: HYPERTENSION
     Route: 048
  12. LISINOPRIL [Concomitant]
     Route: 048
  13. ASTILLIN [Concomitant]
     Indication: HYPERSENSITIVITY
     Dosage: AT NIGHT
  14. TOPROL-XL [Suspect]
     Route: 048
  15. INSULIN [Concomitant]
     Indication: DIABETES MELLITUS
     Dosage: SLIDING SCALE AS REQUIRED
  16. AZMACORT [Concomitant]
     Indication: ASTHMA
  17. NASONEX [Concomitant]
     Indication: HYPERSENSITIVITY
  18. NASONEX [Concomitant]
     Indication: ASTHMA
  19. PROGESTERON [Concomitant]
     Dosage: 0.65 DAILY
  20. CRESTOR [Suspect]
     Indication: HYPERCHOLESTEROLAEMIA
     Route: 048
     Dates: start: 20071001
  21. ASPIRIN [Concomitant]
     Indication: CARDIAC DISORDER
  22. VALIUM [Concomitant]
     Indication: ANXIETY
  23. ASTELIN [Concomitant]
     Indication: ASTHMA
  24. VALIUM [Concomitant]
  25. HUMALOG [Concomitant]
     Indication: TYPE 1 DIABETES MELLITUS
  26. LANTUS [Concomitant]
     Indication: TYPE 1 DIABETES MELLITUS
     Dosage: 10 UNITS
  27. TOPROL-XL [Suspect]
     Indication: HYPERTENSION
     Route: 048
     Dates: start: 20080901
  28. CRESTOR [Suspect]
     Route: 048
  29. ALBUTEROL [Concomitant]
     Indication: ASTHMA
     Dosage: 5- 10 TIMES PER DAY
  30. PROGESTERON [Concomitant]
     Indication: HORMONE REPLACEMENT THERAPY
  31. NASACORT [Concomitant]
     Indication: ASTHMA
     Dosage: 1 SPRAY DAILY

REACTIONS (30)
  - BLINDNESS TRANSIENT [None]
  - CONVULSION [None]
  - HYPOTENSION [None]
  - HYPOGLYCAEMIC COMA [None]
  - ARTERIAL THROMBOSIS [None]
  - LOSS OF CONSCIOUSNESS [None]
  - PARKINSONIAN GAIT [None]
  - SOMNOLENCE [None]
  - NAUSEA [None]
  - ASTHENIA [None]
  - DIZZINESS [None]
  - MENTAL DISORDER [None]
  - HEADACHE [None]
  - INCORRECT DOSE ADMINISTERED [None]
  - PAIN IN EXTREMITY [None]
  - LOWER RESPIRATORY TRACT INFECTION [None]
  - SYNCOPE [None]
  - OVERDOSE [None]
  - ACNE [None]
  - PHOTOPSIA [None]
  - VISION BLURRED [None]
  - MEMORY IMPAIRMENT [None]
  - AMNESIA [None]
  - DYSPNOEA [None]
  - CHEST PAIN [None]
  - DEPRESSED MOOD [None]
  - TENDON PAIN [None]
  - PRURITUS [None]
  - PALPITATIONS [None]
  - RAYNAUD'S PHENOMENON [None]
